FAERS Safety Report 15572820 (Version 6)
Quarter: 2020Q2

REPORT INFORMATION
  Report Type: Report from Study
  Country: US (occurrence: US)
  Receive Date: 20181031
  Receipt Date: 20200605
  Transmission Date: 20200713
  Serious: Yes (Hospitalization)
  Sender: FDA-Public Use
  Company Number: US-ACTELION-A-NJ2018-173166

PATIENT
  Age: 31 Year
  Sex: Female
  Weight: 75.74 kg

DRUGS (5)
  1. ADEMPAS [Concomitant]
     Active Substance: RIOCIGUAT
  2. XARELTO [Concomitant]
     Active Substance: RIVAROXABAN
  3. REMODULIN [Concomitant]
     Active Substance: TREPROSTINIL
  4. TREPROSTINIL. [Concomitant]
     Active Substance: TREPROSTINIL
  5. OPSUMIT [Suspect]
     Active Substance: MACITENTAN
     Indication: PULMONARY ARTERIAL HYPERTENSION
     Dosage: 10 MG, QD
     Route: 048

REACTIONS (14)
  - Pruritus [Unknown]
  - Catheter management [Unknown]
  - Respiratory disorder [Unknown]
  - Sepsis [Unknown]
  - Dyspepsia [Unknown]
  - Erythema [Unknown]
  - Clostridium difficile infection [Unknown]
  - Catheter site discharge [Unknown]
  - Catheter site vesicles [Recovered/Resolved]
  - Skin exfoliation [Unknown]
  - Dizziness [Unknown]
  - Headache [Unknown]
  - Scab [Unknown]
  - Diarrhoea [Unknown]

NARRATIVE: CASE EVENT DATE: 20180702
